FAERS Safety Report 6102974-X (Version None)
Quarter: 2009Q1

REPORT INFORMATION
  Report Type: 
  Country: None (occurrence: None)
  Receive Date: 20090305
  Receipt Date: 20090223
  Transmission Date: 20090719
  Serious: Yes (Other)
  Sender: FDA-Public Use
  Company Number: PHHY2009PL06598

PATIENT
  Sex: Male
  Weight: 100 kg

DRUGS (1)
  1. EXFORGE [Suspect]
     Indication: HYPERTENSION
     Dosage: 1 TABLET DAILY
     Route: 048
     Dates: start: 20081001, end: 20081101

REACTIONS (4)
  - ERECTILE DYSFUNCTION [None]
  - HYPOAESTHESIA [None]
  - MICTURITION URGENCY [None]
  - NOCTURIA [None]
